FAERS Safety Report 6912622-4 (Version None)
Quarter: 2010Q3

REPORT INFORMATION
  Report Type: 
  Country: None (occurrence: None)
  Receive Date: 20100806
  Receipt Date: 20080806
  Transmission Date: 20110219
  Serious: No
  Sender: FDA-Public Use
  Company Number: US-PFIZER INC-2008066033

PATIENT
  Sex: Female

DRUGS (1)
  1. VFEND [Suspect]

REACTIONS (7)
  - CHROMATOPSIA [None]
  - DIZZINESS [None]
  - EYE DISORDER [None]
  - INSOMNIA [None]
  - NAUSEA [None]
  - NERVOUSNESS [None]
  - VOMITING [None]
